FAERS Safety Report 8954057 (Version 3)
Quarter: 2013Q1

REPORT INFORMATION
  Report Type: Spontaneous
  Country: SE (occurrence: SE)
  Receive Date: 20121207
  Receipt Date: 20130128
  Transmission Date: 20140127
  Serious: Yes (Other)
  Sender: FDA-Public Use
  Company Number: SE-BRISTOL-MYERS SQUIBB COMPANY-17185562

PATIENT
  Age: 3 Year
  Sex: Female

DRUGS (9)
  1. LYSODREN [Suspect]
     Indication: ADRENOCORTICAL CARCINOMA
     Dosage: 2WEEKS
     Route: 048
     Dates: start: 20121112, end: 20121128
  2. VINCRISTINE [Suspect]
     Indication: CHEMOTHERAPY
     Dosage: INJ
     Dates: start: 2012
  3. HYDROCORTISONE [Concomitant]
  4. FLUDROCORTISONE [Concomitant]
  5. PHENERGAN [Concomitant]
  6. PARACETAMOL [Concomitant]
  7. CEFTAZIDIME [Concomitant]
  8. ONDANSETRON [Concomitant]
  9. ESOMEPRAZOLE [Concomitant]

REACTIONS (8)
  - Tachycardia [Recovered/Resolved]
  - Febrile neutropenia [Unknown]
  - General physical health deterioration [Unknown]
  - Vomiting [Recovered/Resolved]
  - Nausea [Recovered/Resolved]
  - Pain [Recovered/Resolved]
  - Abdominal pain [Recovered/Resolved]
  - Intentional drug misuse [Unknown]
